FAERS Safety Report 5138283-5 (Version None)
Quarter: 2006Q4

REPORT INFORMATION
  Report Type: 
  Country: None (occurrence: None)
  Receive Date: 20061030
  Receipt Date: 20060814
  Transmission Date: 20070319
  Serious: No
  Sender: FDA-Public Use
  Company Number: US-GLAXOSMITHKLINE-A0616549A

PATIENT
  Age: 69 Year
  Sex: Male

DRUGS (18)
  1. ADVAIR HFA [Suspect]
     Indication: ASTHMA
     Dosage: 1PUFF TWICE PER DAY
     Route: 055
     Dates: start: 20060809
  2. FLOMAX [Concomitant]
  3. FUROSEMIDE [Concomitant]
  4. DULCOLAX [Concomitant]
  5. PROTONIX [Concomitant]
  6. HYDRALAZINE HCL [Concomitant]
  7. LISINOPRIL [Concomitant]
  8. VITAMIN B6 [Concomitant]
  9. PHOSLO [Concomitant]
  10. FOLIC ACID [Concomitant]
  11. AMBIEN [Concomitant]
  12. UNKNOWN MEDICATION [Concomitant]
  13. FERROUS GLUCONATE [Concomitant]
  14. ISOSORBIDE DINITRATE [Concomitant]
  15. PLAVIX [Concomitant]
  16. LIPITOR [Concomitant]
  17. COREG [Concomitant]
  18. VITAMIN B COMPLEX CAP [Concomitant]

REACTIONS (2)
  - DRUG INEFFECTIVE [None]
  - PHARMACEUTICAL PRODUCT COMPLAINT [None]
